FAERS Safety Report 4636741-0 (Version None)
Quarter: 2005Q2

REPORT INFORMATION
  Report Type: 
  Country: None (occurrence: None)
  Receive Date: 20050414
  Receipt Date: 20050406
  Transmission Date: 20051028
  Serious: Yes (Other)
  Sender: FDA-Public Use
  Company Number: 2005056419

PATIENT
  Age: 49 Year
  Sex: Male
  Weight: 79.8331 kg

DRUGS (2)
  1. VIRACEPT [Suspect]
     Indication: HIV INFECTION
     Dosage: ORAL
     Route: 048
     Dates: start: 19970101
  2. AMPRENAVIR (AMPRENAVIR) [Suspect]
     Indication: ILL-DEFINED DISORDER

REACTIONS (6)
  - BLOOD CHOLESTEROL INCREASED [None]
  - CORONARY ARTERY OCCLUSION [None]
  - CRYING [None]
  - DEPRESSION [None]
  - EMOTIONAL DISTRESS [None]
  - MIDDLE INSOMNIA [None]
